FAERS Safety Report 22016423 (Version 2)
Quarter: 2023Q1

REPORT INFORMATION
  Report Type: Spontaneous
  Country: GB (occurrence: GB)
  Receive Date: 20230221
  Receipt Date: 20230227
  Transmission Date: 20230418
  Serious: Yes (Hospitalization)
  Sender: FDA-Public Use
  Company Number: GB-TEVA-2023-GB-2858376

PATIENT

DRUGS (18)
  1. PREDNISOLONE [Suspect]
     Active Substance: PREDNISOLONE
     Indication: Warm autoimmune haemolytic anaemia
     Dosage: 60 MILLIGRAM DAILY;
     Route: 065
  2. PREDNISOLONE [Suspect]
     Active Substance: PREDNISOLONE
     Dosage: 50 MILLIGRAM DAILY; AFTER 2 WEEKS
     Route: 065
  3. PREDNISOLONE [Suspect]
     Active Substance: PREDNISOLONE
     Dosage: 60 MILLIGRAM DAILY; INCREASED BACK TO 60 MG
     Route: 065
  4. PREDNISOLONE [Suspect]
     Active Substance: PREDNISOLONE
     Dosage: 40 MILLIGRAM DAILY;
     Route: 065
  5. TOZINAMERAN [Suspect]
     Active Substance: TOZINAMERAN
     Indication: COVID-19 immunisation
     Route: 065
  6. RITUXIMAB [Suspect]
     Active Substance: RITUXIMAB
     Indication: Warm autoimmune haemolytic anaemia
     Route: 065
  7. METHYLPREDNISOLONE [Suspect]
     Active Substance: METHYLPREDNISOLONE
     Indication: Warm autoimmune haemolytic anaemia
     Route: 065
  8. HUMAN IMMUNOGLOBULIN G [Suspect]
     Active Substance: HUMAN IMMUNOGLOBULIN G
     Indication: Warm autoimmune haemolytic anaemia
     Dosage: 1G/KG
     Route: 042
  9. ECULIZUMAB [Suspect]
     Active Substance: ECULIZUMAB
     Indication: Warm autoimmune haemolytic anaemia
     Route: 065
  10. OMEPRAZOLE [Concomitant]
     Active Substance: OMEPRAZOLE
     Indication: Product used for unknown indication
     Route: 065
  11. FOLIC ACID [Concomitant]
     Active Substance: FOLIC ACID
     Indication: Product used for unknown indication
     Route: 065
  12. FLUTICASONE [Concomitant]
     Active Substance: FLUTICASONE
     Indication: Product used for unknown indication
     Route: 065
  13. CLOBETASONE [Concomitant]
     Active Substance: CLOBETASONE
     Indication: Product used for unknown indication
     Route: 065
  14. TACROLIMUS [Concomitant]
     Active Substance: TACROLIMUS
     Indication: Warm autoimmune haemolytic anaemia
     Dosage: 4 MILLIGRAM DAILY;
     Route: 065
  15. PIPERACILLIN SODIUM\TAZOBACTAM SODIUM [Concomitant]
     Active Substance: PIPERACILLIN SODIUM\TAZOBACTAM SODIUM
     Indication: Antibiotic therapy
     Route: 042
  16. CIPROFLOXACIN [Concomitant]
     Active Substance: CIPROFLOXACIN
     Indication: Antibiotic therapy
     Route: 048
  17. MYCOPHENOLATE MOFETIL [Concomitant]
     Active Substance: MYCOPHENOLATE MOFETIL
     Indication: Warm autoimmune haemolytic anaemia
     Dosage: 1000 MILLIGRAM DAILY;
     Route: 065
  18. CYCLOSPORINE [Concomitant]
     Active Substance: CYCLOSPORINE
     Indication: Warm autoimmune haemolytic anaemia
     Dosage: 200 MILLIGRAM DAILY;
     Route: 065

REACTIONS (4)
  - Warm autoimmune haemolytic anaemia [Recovered/Resolved]
  - Intravascular haemolysis [Recovered/Resolved]
  - Drug ineffective [Unknown]
  - Off label use [Unknown]
